FAERS Safety Report 23256196 (Version 1)
Quarter: 2023Q4

REPORT INFORMATION
  Report Type: Spontaneous
  Country: US (occurrence: US)
  Receive Date: 20231204
  Receipt Date: 20231204
  Transmission Date: 20240110
  Serious: Yes (Hospitalization, Other)
  Sender: FDA-Public Use
  Company Number: US-drreddys-SPO/USA/23/0187683

PATIENT
  Age: 32 Year
  Sex: Female

DRUGS (1)
  1. TESTOSTERONE [Suspect]
     Active Substance: TESTOSTERONE
     Indication: Gender dysphoria
     Dosage: 4 PUMPS DAILY OF TESTOSTERONE GEL 1% (50MG)

REACTIONS (2)
  - Idiopathic intracranial hypertension [Unknown]
  - Product use in unapproved indication [Unknown]
